FAERS Safety Report 8068582-9 (Version None)
Quarter: 2012Q1

REPORT INFORMATION
  Report Type: 
  Country: None (occurrence: None)
  Receive Date: 20120124
  Receipt Date: 20111111
  Transmission Date: 20120608
  Serious: No
  Sender: FDA-Public Use
  Company Number: US-AMGEN-USASP2011059673

PATIENT
  Sex: Male

DRUGS (15)
  1. NEULASTA [Suspect]
     Indication: CHEMOTHERAPY
  2. PREDNISONE [Concomitant]
  3. PLAVIX [Concomitant]
  4. RANITIDINE [Concomitant]
  5. XGEVA [Suspect]
     Indication: METASTASES TO BONE
     Dosage: 120 MG, Q4WK
     Dates: start: 20110228
  6. SIMVASTATIN [Concomitant]
  7. ASPIRIN [Concomitant]
  8. DOCETAXEL [Concomitant]
  9. LOMOTIL [Concomitant]
  10. ONDANSETRON HCL [Concomitant]
  11. COMPAZINE [Concomitant]
  12. DEXAMETHASONE [Concomitant]
  13. DIOVAN [Concomitant]
  14. TOPROL-XL [Concomitant]
  15. LORAZEPAM [Concomitant]

REACTIONS (2)
  - TOOTHACHE [None]
  - PAIN IN JAW [None]
